FAERS Safety Report 24035672 (Version 1)
Quarter: 2024Q3

REPORT INFORMATION
  Report Type: Spontaneous
  Country: US (occurrence: US)
  Receive Date: 20240701
  Receipt Date: 20240701
  Transmission Date: 20241017
  Serious: Yes (Hospitalization, Other)
  Sender: SPECGX
  Company Number: US-SPECGX-T202401390

PATIENT
  Age: 57 Year
  Sex: Male

DRUGS (3)
  1. DEXTROAMPHET SACCHARAT, AMPHET ASPARTATE, DEXTROAMPHET SULFATE AND AMP [Suspect]
     Active Substance: AMPHETAMINE ASPARTATE\AMPHETAMINE SULFATE\DEXTROAMPHETAMINE SACCHARATE\DEXTROAMPHETAMINE SULFATE
     Indication: Product used for unknown indication
     Dosage: UNK
     Route: 065
  2. FENTANYL [Suspect]
     Active Substance: FENTANYL\FENTANYL CITRATE
     Indication: Product used for unknown indication
     Dosage: UNK
     Route: 065
  3. COCAINE [Suspect]
     Active Substance: COCAINE
     Indication: Product used for unknown indication
     Dosage: UNK
     Route: 065

REACTIONS (10)
  - Pneumocystis jirovecii pneumonia [Unknown]
  - Unresponsive to stimuli [Unknown]
  - Acute kidney injury [Unknown]
  - Acute respiratory distress syndrome [Unknown]
  - Lactic acidosis [Unknown]
  - Pyrexia [Unknown]
  - Cyanosis [Unknown]
  - Heart rate increased [Unknown]
  - Endotracheal intubation [Unknown]
  - Substance use [Unknown]
